FAERS Safety Report 7531912-8 (Version None)
Quarter: 2011Q2

REPORT INFORMATION
  Report Type: 
  Country: None (occurrence: None)
  Receive Date: 20110608
  Receipt Date: 20110530
  Transmission Date: 20111010
  Serious: Yes (Other)
  Sender: FDA-Public Use
  Company Number: GB-TEVA-284510ISR

PATIENT
  Age: 56 Year
  Sex: Female

DRUGS (3)
  1. METFORMIN HCL [Concomitant]
  2. ATORVASTATIN [Suspect]
  3. SIMVASTATIN [Suspect]
     Dosage: 40 MILLIGRAM;

REACTIONS (3)
  - MYALGIA [None]
  - APOLIPOPROTEIN A-I DECREASED [None]
  - HIGH DENSITY LIPOPROTEIN DECREASED [None]
